FAERS Safety Report 10777174 (Version 2)
Quarter: 2015Q2

REPORT INFORMATION
  Report Type: Report from Study
  Country: US (occurrence: US)
  Receive Date: 20150209
  Receipt Date: 20150610
  Transmission Date: 20150821
  Serious: Yes (Other)
  Sender: FDA-Public Use
  Company Number: US-BAYER-2014-040290

PATIENT
  Age: 58 Year
  Sex: Female

DRUGS (4)
  1. ADEMPAS [Suspect]
     Active Substance: RIOCIGUAT
     Indication: PULMONARY ARTERIAL HYPERTENSION
     Dosage: 2 MG, TID
  2. ADEMPAS [Suspect]
     Active Substance: RIOCIGUAT
     Indication: PULMONARY ARTERIAL HYPERTENSION
     Dosage: 2.5 MG, TID
     Route: 048
  3. ADEMPAS [Suspect]
     Active Substance: RIOCIGUAT
     Indication: PULMONARY ARTERIAL HYPERTENSION
     Dosage: 1 MG, TID
     Route: 048
     Dates: start: 20140220
  4. ADEMPAS [Suspect]
     Active Substance: RIOCIGUAT
     Indication: PULMONARY ARTERIAL HYPERTENSION
     Dosage: TOTAL DAILY DOSE 4.5 MG
     Route: 048

REACTIONS (16)
  - Dyspnoea [None]
  - Oxygen supplementation [None]
  - Hepatic enzyme increased [None]
  - Drug ineffective [None]
  - Ear pain [None]
  - Peripheral swelling [None]
  - Economic problem [None]
  - Hypotension [None]
  - Oxygen supplementation [None]
  - Headache [None]
  - Joint swelling [Not Recovered/Not Resolved]
  - Feelings of worthlessness [None]
  - Fatigue [None]
  - Oxygen supplementation [Not Recovered/Not Resolved]
  - Cough [None]
  - Abdominal pain [None]

NARRATIVE: CASE EVENT DATE: 20140314
